FAERS Safety Report 4970119-5 (Version None)
Quarter: 2006Q2

REPORT INFORMATION
  Report Type: 
  Country: None (occurrence: None)
  Receive Date: 20060412
  Receipt Date: 20060316
  Transmission Date: 20061013
  Serious: Yes (Other)
  Sender: FDA-Public Use
  Company Number: PHMT2006CA00879

PATIENT
  Age: 55 Year
  Sex: Female

DRUGS (1)
  1. RITALIN [Suspect]
     Indication: ATTENTION DEFICIT/HYPERACTIVITY DISORDER
     Dosage: 100 MG/D
     Route: 048
     Dates: end: 20060315

REACTIONS (10)
  - BACK PAIN [None]
  - EPISTAXIS [None]
  - JAW DISORDER [None]
  - MENTAL DISORDER [None]
  - MUSCULOSKELETAL STIFFNESS [None]
  - SCRATCH [None]
  - SKIN DISORDER [None]
  - STOMACH DISCOMFORT [None]
  - VISUAL DISTURBANCE [None]
  - VOMITING [None]
